FAERS Safety Report 9016298 (Version 3)
Quarter: 2013Q3

REPORT INFORMATION
  Report Type: Spontaneous
  Country: US (occurrence: US)
  Receive Date: 20130116
  Receipt Date: 20130802
  Transmission Date: 20140515
  Serious: Yes (Hospitalization, Other)
  Sender: FDA-Public Use
  Company Number: US-AMGEN-USASP2013002131

PATIENT
  Age: 57 Year
  Sex: Male
  Weight: 90.7 kg

DRUGS (5)
  1. ENBREL [Suspect]
     Indication: PSORIASIS
     Dosage: 50 MG, 2 TIMES/WK
     Route: 058
     Dates: start: 201212
  2. CYMBALTA [Concomitant]
     Dosage: 20 MG, UNK
  3. PANTOPRAZOLE [Concomitant]
     Dosage: 20 MG, UNK
  4. SIMVASTATIN [Concomitant]
     Dosage: 10 MG, UNK
  5. LOSARTAN POTASSIUM [Concomitant]
     Dosage: 25 MG, UNK

REACTIONS (1)
  - Appendicitis perforated [Unknown]
